FAERS Safety Report 5571464-5 (Version None)
Quarter: 2007Q4

REPORT INFORMATION
  Report Type: 
  Country: None (occurrence: None)
  Receive Date: 20071221
  Receipt Date: 20071214
  Transmission Date: 20080405
  Serious: Yes (Hospitalization)
  Sender: FDA-Public Use
  Company Number: JP-ROCHE-535224

PATIENT
  Age: 58 Year
  Sex: Male

DRUGS (1)
  1. HORIZON [Suspect]
     Indication: PREMEDICATION
     Route: 042
     Dates: start: 20071101, end: 20071101

REACTIONS (1)
  - THROMBOPHLEBITIS [None]
